FAERS Safety Report 5410826-3 (Version None)
Quarter: 2007Q3

REPORT INFORMATION
  Report Type: 
  Country: None (occurrence: None)
  Receive Date: 20070810
  Receipt Date: 20070807
  Transmission Date: 20080115
  Serious: Yes (Other)
  Sender: FDA-Public Use
  Company Number: GBWYE144207AUG07

PATIENT
  Sex: Female

DRUGS (2)
  1. VENLAFAXIINE HCL [Suspect]
     Dosage: UNKNOWN
  2. MIRTAZAPINE [Suspect]
     Dosage: UNKNOWN

REACTIONS (1)
  - BENIGN INTRACRANIAL HYPERTENSION [None]
